FAERS Safety Report 17936455 (Version 3)
Quarter: 2020Q3

REPORT INFORMATION
  Report Type: Spontaneous
  Country: US (occurrence: US)
  Receive Date: 20200624
  Receipt Date: 20200803
  Transmission Date: 20201103
  Serious: No
  Sender: FDA-Public Use
  Company Number: US-JNJFOC-20200629203

PATIENT
  Age: 43 Year
  Sex: Female

DRUGS (1)
  1. SIMPONI [Suspect]
     Active Substance: GOLIMUMAB
     Indication: PRODUCT USED FOR UNKNOWN INDICATION
     Route: 058

REACTIONS (9)
  - Application site reaction [Unknown]
  - Product dose omission issue [Unknown]
  - Arthritis [Unknown]
  - Pain [Unknown]
  - Injection site haemorrhage [Unknown]
  - Device malfunction [Unknown]
  - Product quality issue [Unknown]
  - Gait disturbance [Unknown]
  - Skin lesion [Unknown]

NARRATIVE: CASE EVENT DATE: 20200624
